FAERS Safety Report 13985745 (Version 1)
Quarter: 2017Q3

REPORT INFORMATION
  Report Type: Spontaneous
  Country: DE (occurrence: DE)
  Receive Date: 20170919
  Receipt Date: 20170919
  Transmission Date: 20171128
  Serious: Yes (Hospitalization, Other)
  Sender: FDA-Public Use
  Company Number: DE-AMGEN-DEUCT2012056291

PATIENT
  Sex: Female

DRUGS (18)
  1. DOXORUBICIN [Suspect]
     Active Substance: DOXORUBICIN
     Dosage: 51.375 MG, QD (1 IN 1D)
     Route: 042
     Dates: start: 20120814, end: 20120814
  2. PEGFILGRASTIM [Suspect]
     Active Substance: PEGFILGRASTIM
     Indication: B-CELL LYMPHOMA
     Dosage: 6 MG, QD (1 IN 1D)
     Route: 058
     Dates: start: 20120731, end: 20120731
  3. VINCRISTINE [Suspect]
     Active Substance: VINCRISTINE
     Dosage: 2.78 MG, QD (1 IN 1D)
     Route: 042
     Dates: start: 20120814, end: 20120814
  4. PREDNISOLONE. [Suspect]
     Active Substance: PREDNISOLONE
     Indication: B-CELL LYMPHOMA
     Dosage: 100 MG, QD (1 IN 1D)
     Route: 048
     Dates: start: 20120726, end: 20120726
  5. BISOPROLOL FUMARATE. [Concomitant]
     Active Substance: BISOPROLOL FUMARATE
     Indication: HYPERTENSION
     Dosage: 5 MG, QD (1 IN 1D)
     Route: 048
     Dates: start: 20120821, end: 20120822
  6. DOXORUBICIN [Suspect]
     Active Substance: DOXORUBICIN
     Indication: B-CELL LYMPHOMA
     Dosage: 68.5 MG, QD (1 IN 1D)
     Route: 042
     Dates: start: 20120726, end: 20120726
  7. CYCLOPHOSPHAMIDE. [Suspect]
     Active Substance: CYCLOPHOSPHAMIDE
     Indication: B-CELL LYMPHOMA
     Dosage: 1027.5 MG, QD (1 IN 1D)
     Route: 040
     Dates: start: 20120726, end: 20120726
  8. PEGFILGRASTIM [Suspect]
     Active Substance: PEGFILGRASTIM
     Dosage: 6 MG, QD (1 IN 1D)
     Route: 058
     Dates: start: 20120817, end: 20120817
  9. VINCRISTINE [Suspect]
     Active Substance: VINCRISTINE
     Indication: B-CELL LYMPHOMA
     Dosage: 2.68 MG, QD (1 IN 1D)
     Route: 042
     Dates: start: 20120826, end: 20120826
  10. LOSARTAN POTASSIUM. [Concomitant]
     Active Substance: LOSARTAN POTASSIUM
     Indication: HYPERTENSION
     Dosage: 25 MG, QD (1 IN 1D)
     Route: 048
     Dates: start: 20120821, end: 20120822
  11. PANTOPRAZOLE SODIUM. [Concomitant]
     Active Substance: PANTOPRAZOLE SODIUM
     Indication: PROPHYLAXIS AGAINST GASTROINTESTINAL ULCER
     Dosage: 40 MG, QD (1 IN 1D)
     Route: 048
     Dates: start: 20120821, end: 20120822
  12. ALLOPURINOL. [Concomitant]
     Active Substance: ALLOPURINOL
     Indication: BLOOD URIC ACID INCREASED
     Dosage: 150 MG, QD (1 IN 1D)
     Route: 048
     Dates: start: 20120821, end: 20120822
  13. RITUXIMAB. [Suspect]
     Active Substance: RITUXIMAB
     Indication: B-CELL LYMPHOMA
     Dosage: 513.75 MG, QD (1 IN 1D)
     Route: 042
     Dates: start: 20120725, end: 20120725
  14. RITUXIMAB. [Suspect]
     Active Substance: RITUXIMAB
     Dosage: 513.75 MG, QD (1 IN 1D)
     Route: 042
     Dates: start: 20120813, end: 20120813
  15. CYCLOPHOSPHAMIDE. [Suspect]
     Active Substance: CYCLOPHOSPHAMIDE
     Dosage: 770.615 MG, QD (1 IN 1D)
     Route: 042
     Dates: start: 20120814, end: 20120814
  16. PREDNISOLONE. [Suspect]
     Active Substance: PREDNISOLONE
     Dosage: 100 MG, QD (1 IN 1D)
     Route: 048
     Dates: start: 20120814, end: 20120818
  17. AMLODIPINE [Concomitant]
     Active Substance: AMLODIPINE BESYLATE
     Indication: HYPERTENSION
     Dosage: 5 MG, BID (2 IN 1D)
     Route: 048
     Dates: start: 20120821, end: 20120822
  18. FUROSEMIDE. [Concomitant]
     Active Substance: FUROSEMIDE
     Indication: OEDEMA
     Dosage: 20 MG, QD (1 IN 1D)
     Route: 048
     Dates: start: 20120821, end: 20120822

REACTIONS (4)
  - Febrile neutropenia [Unknown]
  - Febrile neutropenia [Recovered/Resolved]
  - Neutropenia [Recovered/Resolved]
  - C-reactive protein increased [Recovered/Resolved]

NARRATIVE: CASE EVENT DATE: 20120803
